FAERS Safety Report 6144094-4 (Version None)
Quarter: 2009Q2

REPORT INFORMATION
  Report Type: 
  Country: None (occurrence: None)
  Receive Date: 20090401
  Receipt Date: 20090326
  Transmission Date: 20091009
  Serious: Yes (Hospitalization)
  Sender: FDA-Public Use
  Company Number: THQ2009A01349

PATIENT
  Sex: Female

DRUGS (2)
  1. ACTOS [Suspect]
     Dates: start: 20071001
  2. EVISTA [Suspect]
     Dosage: 60 MG (60 MG, 1 IN 1 D)
     Dates: start: 19990101

REACTIONS (4)
  - CEREBROVASCULAR ACCIDENT [None]
  - CLOSTRIDIAL INFECTION [None]
  - MALAISE [None]
  - MUSCLE SPASMS [None]
